FAERS Safety Report 4362402-1 (Version None)
Quarter: 2004Q2

REPORT INFORMATION
  Report Type: 
  Country: None (occurrence: None)
  Receive Date: 20040521
  Receipt Date: 20040409
  Transmission Date: 20050107
  Serious: Yes (Other)
  Sender: FDA-Public Use
  Company Number: BE-MERCK-0404BEL00027

PATIENT
  Age: 62 Year
  Sex: Male

DRUGS (2)
  1. COSOPT [Suspect]
     Indication: OPEN ANGLE GLAUCOMA
     Route: 047
     Dates: start: 20000419
  2. TRAVOPROST [Concomitant]
     Indication: OPEN ANGLE GLAUCOMA
     Route: 047
     Dates: start: 20020320

REACTIONS (3)
  - COLOUR BLINDNESS [None]
  - RETINAL DISORDER [None]
  - VISUAL ACUITY REDUCED [None]
